FAERS Safety Report 7125377-8 (Version None)
Quarter: 2010Q4

REPORT INFORMATION
  Report Type: 
  Country: None (occurrence: None)
  Receive Date: 20101129
  Receipt Date: 20101118
  Transmission Date: 20110411
  Serious: Yes (Death, Hospitalization)
  Sender: FDA-Public Use
  Company Number: JP-JNJFOC-20101107333

PATIENT
  Age: 71 Year
  Sex: Male

DRUGS (2)
  1. FINIBAX [Suspect]
     Indication: SEPSIS
     Route: 041
  2. GRANULOCYTE COLONY-STIMULATING FACTOR [Suspect]
     Indication: PRODUCT USED FOR UNKNOWN INDICATION
     Route: 041

REACTIONS (3)
  - ACUTE RESPIRATORY DISTRESS SYNDROME [None]
  - CEREBRAL HAEMORRHAGE [None]
  - JAUNDICE [None]
